FAERS Safety Report 12898214 (Version 1)
Quarter: 2016Q4

REPORT INFORMATION
  Report Type: Spontaneous
  Country: IL (occurrence: IL)
  Receive Date: 20161031
  Receipt Date: 20161031
  Transmission Date: 20170207
  Serious: Yes (Other)
  Sender: FDA-Public Use
  Company Number: IL-009507513-1610ISR013739

PATIENT

DRUGS (1)
  1. JANUET XR [Suspect]
     Active Substance: METFORMIN HYDROCHLORIDE\SITAGLIPTIN PHOSPHATE
     Dosage: 2 TABLETS, ONCE A DAY
     Route: 048

REACTIONS (3)
  - Product physical issue [Unknown]
  - Discomfort [Unknown]
  - Diabetes mellitus inadequate control [Recovered/Resolved]
